FAERS Safety Report 6357929-7 (Version None)
Quarter: 2009Q3

REPORT INFORMATION
  Report Type: 
  Country: None (occurrence: None)
  Receive Date: 20090911
  Receipt Date: 20090827
  Transmission Date: 20100115
  Serious: Yes (Other)
  Sender: FDA-Public Use
  Company Number: PAR_03156_2009

PATIENT
  Age: 36 Year
  Sex: Female

DRUGS (1)
  1. CLOMIPHENE CITRATE [Suspect]
     Indication: INFERTILITY
     Dosage: (DF EVERY MORNING ON DAYS 3 TO 7 OF THE PERIOD (EIGHT COURSE TOTAL) ORAL)
     Route: 048

REACTIONS (10)
  - ABDOMINAL DISCOMFORT [None]
  - AMAUROSIS FUGAX [None]
  - DEEP VEIN THROMBOSIS [None]
  - HYPOVOLAEMIA [None]
  - PULMONARY EMBOLISM [None]
  - RETINAL ARTERY OCCLUSION [None]
  - RETINAL EXUDATES [None]
  - RETINAL HAEMORRHAGE [None]
  - RETINAL VEIN OCCLUSION [None]
  - SCOTOMA [None]
